FAERS Safety Report 5051658-8 (Version None)
Quarter: 2006Q3

REPORT INFORMATION
  Report Type: 
  Country: None (occurrence: None)
  Receive Date: 20060714
  Receipt Date: 20060517
  Transmission Date: 20061208
  Serious: Yes (Hospitalization, Other)
  Sender: FDA-Public Use
  Company Number: PHBS2006IE07270

PATIENT
  Age: 61 Year
  Sex: Female

DRUGS (5)
  1. LUSTRAL [Concomitant]
     Dosage: 50 MG, QD
     Route: 065
  2. DIFENE [Concomitant]
     Dosage: UNK, PRN
     Route: 065
  3. ARIMIDEX [Concomitant]
     Route: 065
  4. CHEMOTHERAPEUTICS,OTHER [Concomitant]
     Route: 065
  5. ZOMETA [Suspect]
     Indication: METASTASES TO BONE
     Dosage: 4 MG, UNK
     Route: 042

REACTIONS (9)
  - ABSCESS JAW [None]
  - DENTAL TREATMENT [None]
  - INCISIONAL DRAINAGE [None]
  - INFECTION [None]
  - INFLAMMATION [None]
  - RESORPTION BONE INCREASED [None]
  - SWELLING [None]
  - TOOTH EXTRACTION [None]
  - TOOTHACHE [None]
